FAERS Safety Report 9265789 (Version 5)
Quarter: 2014Q2

REPORT INFORMATION
  Report Type: Spontaneous
  Country: US (occurrence: US)
  Receive Date: 20130501
  Receipt Date: 20140624
  Transmission Date: 20141212
  Serious: Yes (Hospitalization, Other)
  Sender: FDA-Public Use
  Company Number: US-009507513-1304USA016979

PATIENT
  Sex: Female
  Weight: 58.96 kg

DRUGS (4)
  1. FOSAMAX [Suspect]
     Indication: OSTEOPOROSIS POSTMENOPAUSAL
     Dosage: 70 MG, UNK
     Route: 048
     Dates: start: 20020328, end: 200701
  2. FOSAMAX [Suspect]
     Indication: OSTEOPOROSIS
  3. FOSAMAX PLUS D [Suspect]
     Indication: OSTEOPOROSIS POSTMENOPAUSAL
     Dosage: 70 MG/2800 QW
     Route: 048
     Dates: start: 20070111
  4. FOSAMAX PLUS D [Suspect]
     Indication: OSTEOPOROSIS

REACTIONS (30)
  - Femur fracture [Recovering/Resolving]
  - Intramedullary rod insertion [Unknown]
  - Hypoacusis [Unknown]
  - Medical device removal [Unknown]
  - Impaired healing [Unknown]
  - Anaemia [Unknown]
  - Hypertension [Unknown]
  - Osteopenia [Unknown]
  - Device dislocation [Unknown]
  - Cervical radiculopathy [Unknown]
  - Hypokalaemia [Unknown]
  - Hypercholesterolaemia [Unknown]
  - Hernia repair [Unknown]
  - Appendicectomy [Unknown]
  - Tooth abscess [Unknown]
  - Abscess [Unknown]
  - Spinal disorder [Unknown]
  - Ear pain [Unknown]
  - Hypoaesthesia [Unknown]
  - Osteoarthritis [Unknown]
  - Hand deformity [Unknown]
  - Carpal tunnel syndrome [Unknown]
  - Tympanic membrane scarring [Unknown]
  - Vitamin D deficiency [Unknown]
  - Hyperparathyroidism [Unknown]
  - Chondrocalcinosis [Unknown]
  - Osteoarthritis [Unknown]
  - Spinal osteoarthritis [Unknown]
  - Constipation [Unknown]
  - Gastrooesophageal reflux disease [Unknown]
